FAERS Safety Report 17124818 (Version 2)
Quarter: 2019Q4

REPORT INFORMATION
  Report Type: Spontaneous
  Country: CA (occurrence: CA)
  Receive Date: 20191206
  Receipt Date: 20191231
  Transmission Date: 20200122
  Serious: Yes (Hospitalization, Other)
  Sender: FDA-Public Use
  Company Number: CA-SHIRE-CA201940967

PATIENT

DRUGS (2)
  1. GAMMAGARD LIQUID [Suspect]
     Active Substance: HUMAN IMMUNOGLOBULIN G
     Indication: LYMPHOPLASMACYTOID LYMPHOMA/IMMUNOCYTOMA
     Dosage: 5 GRAM
     Route: 042
     Dates: start: 20190614, end: 20190614
  2. GAMMAGARD LIQUID [Suspect]
     Active Substance: HUMAN IMMUNOGLOBULIN G
     Indication: SECONDARY IMMUNODEFICIENCY
     Dosage: 10 GRAM
     Route: 042
     Dates: start: 20190614, end: 20190614

REACTIONS (8)
  - Urosepsis [Recovered/Resolved with Sequelae]
  - Heart rate increased [Recovered/Resolved with Sequelae]
  - Blood pressure increased [Recovered/Resolved with Sequelae]
  - Escherichia infection [Recovered/Resolved with Sequelae]
  - Chills [Recovered/Resolved with Sequelae]
  - Febrile nonhaemolytic transfusion reaction [Recovered/Resolved with Sequelae]
  - Infusion related reaction [Unknown]
  - Body temperature increased [Recovered/Resolved with Sequelae]

NARRATIVE: CASE EVENT DATE: 20190614
